FAERS Safety Report 13580493 (Version 1)
Quarter: 2017Q2

REPORT INFORMATION
  Report Type: Spontaneous
  Country: CA (occurrence: US)
  Receive Date: 20170525
  Receipt Date: 20170525
  Transmission Date: 20170830
  Serious: Yes (Hospitalization)
  Sender: FDA-Public Use
  Company Number: None

PATIENT
  Age: 57 Year
  Sex: Male
  Weight: 90 kg

DRUGS (1)
  1. TEMOZOLOMIDE. [Suspect]
     Active Substance: TEMOZOLOMIDE
     Dates: end: 20161104

REACTIONS (6)
  - Pyrexia [None]
  - Rash [None]
  - Cough [None]
  - Headache [None]
  - Viral infection [None]
  - Conjunctivitis [None]

NARRATIVE: CASE EVENT DATE: 20161124
